FAERS Safety Report 13056003 (Version 2)
Quarter: 2017Q1

REPORT INFORMATION
  Report Type: Spontaneous
  Country: US (occurrence: US)
  Receive Date: 20161222
  Receipt Date: 20170310
  Transmission Date: 20170428
  Serious: No
  Sender: FDA-Public Use
  Company Number: US-GLAXOSMITHKLINE-US2016189084

PATIENT
  Age: 71 Year
  Sex: Male

DRUGS (10)
  1. ANDROGEL [Concomitant]
     Active Substance: TESTOSTERONE
  2. FLUTICASONE PROPIONATE NASAL SPRAY [Concomitant]
     Active Substance: FLUTICASONE PROPIONATE
  3. FLOVENT [Suspect]
     Active Substance: FLUTICASONE PROPIONATE
     Indication: ASTHMA
     Dosage: 1 PUFF(S), BID
     Route: 055
     Dates: start: 201608, end: 20161205
  4. ESZOPICLONE. [Concomitant]
     Active Substance: ESZOPICLONE
  5. VENTOLIN HFA [Suspect]
     Active Substance: ALBUTEROL SULFATE
     Indication: ASTHMA
     Dosage: 1 PUFF(S), QD
     Route: 055
  6. CELECOXIB. [Concomitant]
     Active Substance: CELECOXIB
  7. MONTELUKAST [Concomitant]
     Active Substance: MONTELUKAST SODIUM
  8. QUETIAPINE. [Concomitant]
     Active Substance: QUETIAPINE
  9. BREO ELLIPTA [Suspect]
     Active Substance: FLUTICASONE FUROATE\VILANTEROL TRIFENATATE
     Indication: ASTHMA
     Dosage: 1 PUFF(S), QD
     Route: 055
     Dates: start: 20161205
  10. LOSARTAN. [Concomitant]
     Active Substance: LOSARTAN

REACTIONS (5)
  - Knee operation [Recovered/Resolved]
  - Underdose [Unknown]
  - Oropharyngeal pain [Not Recovered/Not Resolved]
  - Cough [Recovering/Resolving]
  - Drug ineffective [Unknown]

NARRATIVE: CASE EVENT DATE: 20160714
